FAERS Safety Report 10026724 (Version 2)
Quarter: 2014Q2

REPORT INFORMATION
  Report Type: Spontaneous
  Country: GB (occurrence: None)
  Receive Date: 20140318
  Receipt Date: 20140407
  Transmission Date: 20141212
  Serious: Yes (Death, Hospitalization)
  Sender: FDA-Public Use
  Company Number: GB-011328

PATIENT
  Age: 80 Year
  Sex: Male
  Weight: 88 kg

DRUGS (15)
  1. FIRMAGON [Suspect]
     Indication: PROSTATE CANCER
     Route: 058
     Dates: start: 20121217
  2. AMLODIPINE [Suspect]
     Indication: HYPERTENSION
     Route: 048
     Dates: start: 20070101, end: 20130218
  3. SPIRON [Concomitant]
  4. INSULIN [Concomitant]
  5. DEXAMETHASONE [Concomitant]
  6. ZOLEDRONIC ACID [Concomitant]
  7. BICALUTAMIDE [Concomitant]
  8. BISOPROLOL [Concomitant]
  9. FOLIC ACID [Concomitant]
  10. FENTANYL [Concomitant]
  11. DOXAZOSIN [Concomitant]
  12. FUROSEMIDE [Concomitant]
  13. GLICLAZIDE [Concomitant]
  14. RAMIPRIL [Concomitant]
  15. SIMVAST [Concomitant]

REACTIONS (2)
  - Cardiac failure congestive [None]
  - Left ventricular hypertrophy [None]
